FAERS Safety Report 6800569-3 (Version None)
Quarter: 2010Q2

REPORT INFORMATION
  Report Type: 
  Country: None (occurrence: None)
  Receive Date: 20100625
  Receipt Date: 20100625
  Transmission Date: 20101027
  Serious: No
  Sender: FDA-Public Use
  Company Number: None

PATIENT

DRUGS (1)
  1. XYLOCAINE W/ EPINEPHRENE [Suspect]
     Indication: LOCAL ANAESTHESIA
     Dosage: 5ML ONCE CUTANEOUS
     Route: 003
     Dates: start: 20100625, end: 20100625

REACTIONS (1)
  - DRUG INEFFECTIVE [None]
